FAERS Safety Report 20336835 (Version 5)
Quarter: 2023Q1

REPORT INFORMATION
  Report Type: Spontaneous
  Country: IL (occurrence: IL)
  Receive Date: 20220114
  Receipt Date: 20230324
  Transmission Date: 20230418
  Serious: Yes (Hospitalization, Other)
  Sender: FDA-Public Use
  Company Number: IL-VERTEX PHARMACEUTICALS-2022-000076

PATIENT
  Age: 34 Year
  Sex: Female

DRUGS (1)
  1. TRIKAFTA [Suspect]
     Active Substance: ELEXACAFTOR\IVACAFTOR\TEZACAFTOR
     Indication: Cystic fibrosis
     Dosage: FULL DOSE
     Route: 048
     Dates: start: 2020

REACTIONS (4)
  - Oligohydramnios [Unknown]
  - Foetal heart rate deceleration abnormality [Unknown]
  - Exposure during pregnancy [Unknown]
  - Labour induction [Unknown]

NARRATIVE: CASE EVENT DATE: 20210101
